FAERS Safety Report 21391101 (Version 1)
Quarter: 2022Q3

REPORT INFORMATION
  Report Type: Spontaneous
  Country: US (occurrence: None)
  Receive Date: 20220927
  Receipt Date: 20220927
  Transmission Date: 20221026
  Serious: Yes (Other)
  Sender: FDA-Public Use
  Company Number: None

PATIENT
  Age: 68 Year
  Sex: Female
  Weight: 72 kg

DRUGS (2)
  1. MAGNESIUM CITRATE [Suspect]
     Active Substance: MAGNESIUM CITRATE
     Indication: Colonoscopy
     Dosage: OTHER QUANTITY : 10 OUNCE(S);?OTHER FREQUENCY : ONCE;?
     Route: 048
     Dates: start: 20220926, end: 20220926
  2. MAGNESIUM CITRATE [Suspect]
     Active Substance: MAGNESIUM CITRATE
     Indication: Endoscopy

REACTIONS (6)
  - Recalled product administered [None]
  - Abdominal distension [None]
  - Pain [None]
  - Vomiting [None]
  - Disorientation [None]
  - Confusional state [None]

NARRATIVE: CASE EVENT DATE: 20220926
